FAERS Safety Report 5665463-2 (Version None)
Quarter: 2008Q1

REPORT INFORMATION
  Report Type: 
  Country: None (occurrence: None)
  Receive Date: 20080314
  Receipt Date: 20071210
  Transmission Date: 20080703
  Serious: No
  Sender: FDA-Public Use
  Company Number: US-ABBOTT-07P-163-0428103-00

PATIENT
  Sex: Male
  Weight: 86.26 kg

DRUGS (3)
  1. HUMIRA [Suspect]
     Indication: PSORIATIC ARTHROPATHY
     Route: 058
     Dates: start: 20050101, end: 20070301
  2. HUMIRA [Suspect]
     Route: 058
     Dates: start: 20070301, end: 20070501
  3. HUMIRA [Suspect]
     Route: 058
     Dates: start: 20070501

REACTIONS (2)
  - DRUG INEFFECTIVE [None]
  - PAIN [None]
